FAERS Safety Report 6357797-3 (Version None)
Quarter: 2009Q3

REPORT INFORMATION
  Report Type: 
  Country: None (occurrence: None)
  Receive Date: 20090916
  Receipt Date: 20090908
  Transmission Date: 20100115
  Serious: No
  Sender: FDA-Public Use
  Company Number: US-B.I. PHARMACEUTICALS,INC./RIDGEFIELD-2009-BP-10590BP

PATIENT
  Sex: Female

DRUGS (5)
  1. SPIRIVA [Suspect]
     Indication: EMPHYSEMA
     Dosage: 18 MCG
     Route: 055
     Dates: start: 20081101
  2. EFFEXOR [Concomitant]
     Indication: ANXIETY
     Route: 048
  3. TAMOXIFEN CITRATE [Concomitant]
     Indication: BREAST CANCER
     Route: 048
  4. SYSTANE LUBRICANT [Concomitant]
     Indication: DRY EYE
     Route: 047
     Dates: start: 20030101
  5. CRESTOR [Concomitant]
     Indication: BLOOD CHOLESTEROL INCREASED
     Route: 048
     Dates: start: 20090501

REACTIONS (3)
  - DRY MOUTH [None]
  - DYSGEUSIA [None]
  - OSTEOPENIA [None]
